FAERS Safety Report 9381790 (Version 2)
Quarter: 2013Q3

REPORT INFORMATION
  Report Type: Spontaneous
  Country: JP (occurrence: JP)
  Receive Date: 20130703
  Receipt Date: 20130725
  Transmission Date: 20140515
  Serious: Yes (Other)
  Sender: FDA-Public Use
  Company Number: JP-PFIZER INC-2013190474

PATIENT
  Age: 47 Year
  Sex: Male
  Weight: 60.6 kg

DRUGS (8)
  1. VFEND [Suspect]
     Indication: SYSTEMIC MYCOSIS
     Dosage: 400 MG, 1X/DAY
     Dates: start: 20121117, end: 20121117
  2. VFEND [Interacting]
     Dosage: 200 MG, 2X/DAY
     Dates: start: 20121118, end: 20121205
  3. OXYFAST [Interacting]
     Indication: STOMATITIS
     Dosage: 70 MG/DAY
     Dates: start: 20121111
  4. OXYFAST [Interacting]
     Dosage: 75 MG/DAY
  5. OXYFAST [Interacting]
     Dosage: 37.5 MG/DAY
     Dates: start: 20121118, end: 20121118
  6. OXYFAST [Interacting]
     Dosage: 25 MG/DAY
     Dates: start: 20121119, end: 20121204
  7. ITRACONAZOLE [Concomitant]
     Indication: SYSTEMIC MYCOSIS
     Dosage: UNK
     Route: 048
     Dates: end: 20121113
  8. MICAFUNGIN [Concomitant]
     Indication: SYSTEMIC MYCOSIS
     Dosage: UNK
     Dates: start: 20121114, end: 20121116

REACTIONS (2)
  - Drug interaction [Recovered/Resolved]
  - Delirium [Recovered/Resolved]
